FAERS Safety Report 7967709-4 (Version None)
Quarter: 2011Q4

REPORT INFORMATION
  Report Type: 
  Country: None (occurrence: None)
  Receive Date: 20111209
  Receipt Date: 20111206
  Transmission Date: 20120403
  Serious: No
  Sender: FDA-Public Use
  Company Number: US-B.I. PHARMACEUTICALS,INC./RIDGEFIELD-2011-BP-27475BP

PATIENT
  Sex: Female

DRUGS (6)
  1. PEPCID AC [Concomitant]
     Indication: GASTROOESOPHAGEAL REFLUX DISEASE
     Dosage: 10 MG
     Route: 048
  2. TRADJENTA [Suspect]
     Indication: BLOOD GLUCOSE INCREASED
     Dosage: 5 MG
     Route: 048
     Dates: start: 20111202
  3. CALCIUM MAGNESIUM ZINC [Concomitant]
     Indication: OSTEOPOROSIS
     Route: 048
  4. TRADJENTA [Suspect]
     Indication: TYPE 2 DIABETES MELLITUS
  5. ACETAMINOPHEN [Concomitant]
     Indication: GASTROOESOPHAGEAL REFLUX DISEASE
     Route: 048
  6. EDARBI [Suspect]
     Indication: HYPERTENSION
     Dosage: 80 MG
     Route: 048
     Dates: start: 20111101

REACTIONS (9)
  - EYE HAEMORRHAGE [None]
  - DRY EYE [None]
  - DIZZINESS [None]
  - OROPHARYNGEAL PAIN [None]
  - EYE PAIN [None]
  - RHINORRHOEA [None]
  - CONFUSIONAL STATE [None]
  - VISUAL IMPAIRMENT [None]
  - CHILLS [None]
